FAERS Safety Report 5378027-5 (Version None)
Quarter: 2007Q2

REPORT INFORMATION
  Report Type: 
  Country: None (occurrence: None)
  Receive Date: 20070629
  Receipt Date: 20070618
  Transmission Date: 20071010
  Serious: Yes (Hospitalization)
  Sender: FDA-Public Use
  Company Number: 0706-481

PATIENT
  Age: 70 Year
  Sex: Female
  Weight: 61.2356 kg

DRUGS (9)
  1. DUONEB [Suspect]
     Indication: CHRONIC OBSTRUCTIVE PULMONARY DISEASE
     Dosage: 1 AMP, Q4 HRS, NEBULIZER
  2. FUROSEMIDE [Concomitant]
  3. SPIRONOLACTONE [Concomitant]
  4. THYROID MED [Concomitant]
  5. ZOCOR [Concomitant]
  6. SINGULAIR [Concomitant]
  7. ALLEGRA [Concomitant]
  8. NEXIUM [Concomitant]
  9. GABAPENTUM [Concomitant]

REACTIONS (5)
  - ERYTHEMA [None]
  - FALL [None]
  - FEELING ABNORMAL [None]
  - HIP FRACTURE [None]
  - OEDEMA PERIPHERAL [None]
